FAERS Safety Report 12388278 (Version 3)
Quarter: 2016Q3

REPORT INFORMATION
  Report Type: Spontaneous
  Country: JP (occurrence: JP)
  Receive Date: 20160520
  Receipt Date: 20160707
  Transmission Date: 20161109
  Serious: Yes (Hospitalization, Other)
  Sender: FDA-Public Use
  Company Number: PHJP2015JP023712

PATIENT
  Age: 59 Year
  Sex: Female
  Weight: 49 kg

DRUGS (7)
  1. OXYCONTIN [Concomitant]
     Active Substance: OXYCODONE HYDROCHLORIDE
     Indication: METASTASES TO BONE
     Dosage: 2.5 MG, QID
     Route: 048
     Dates: start: 20140723, end: 20150826
  2. MOBIC [Concomitant]
     Active Substance: MELOXICAM
     Indication: METASTASES TO BONE
     Dosage: 5 MG, QD
     Route: 048
     Dates: start: 20111226
  3. AFINITOR [Concomitant]
     Active Substance: EVEROLIMUS
     Indication: BREAST CANCER
     Dosage: 5 MG, QD
     Route: 048
     Dates: start: 20150624, end: 20151221
  4. LANSOPRAZOLE. [Concomitant]
     Active Substance: LANSOPRAZOLE
     Indication: GASTRIC ULCER
     Dosage: 30 MG, QD
     Route: 048
     Dates: start: 20141212
  5. MAGNESIUM [Concomitant]
     Active Substance: MAGNESIUM
     Indication: CONSTIPATION
     Dosage: 2 MG, QD
     Route: 048
     Dates: start: 20130712, end: 20150401
  6. ZOMETA [Suspect]
     Active Substance: ZOLEDRONIC ACID
     Indication: METASTASES TO BONE
     Dosage: 4 MG, QD
     Route: 041
     Dates: start: 20061115, end: 20150325
  7. AROMASIN [Suspect]
     Active Substance: EXEMESTANE
     Indication: BREAST CANCER
     Dosage: 25 MG, QD
     Route: 048
     Dates: start: 20050323, end: 20061115

REACTIONS (6)
  - Fall [Unknown]
  - Metastases to bone [Unknown]
  - Femur fracture [Recovering/Resolving]
  - Atypical femur fracture [Recovering/Resolving]
  - Pain in extremity [Unknown]
  - Malignant neoplasm progression [Unknown]

NARRATIVE: CASE EVENT DATE: 20141116
